FAERS Safety Report 18374237 (Version 4)
Quarter: 2020Q4

REPORT INFORMATION
  Report Type: Report from Study
  Country: US (occurrence: US)
  Receive Date: 20201013
  Receipt Date: 20201204
  Transmission Date: 20210114
  Serious: Yes (Other)
  Sender: FDA-Public Use
  Company Number: US-GILEAD-2020-0498337

PATIENT
  Age: 66 Year
  Sex: Male

DRUGS (1)
  1. AMBRISENTAN [Suspect]
     Active Substance: AMBRISENTAN
     Indication: PULMONARY HYPERTENSION
     Dosage: 10 MG, QD
     Route: 065
     Dates: start: 20100201

REACTIONS (13)
  - Cough [Not Recovered/Not Resolved]
  - Hypotension [Unknown]
  - Dizziness postural [Not Recovered/Not Resolved]
  - Joint swelling [Unknown]
  - Dizziness [Not Recovered/Not Resolved]
  - Dyspnoea [Not Recovered/Not Resolved]
  - Leukaemia [Not Recovered/Not Resolved]
  - Peripheral swelling [Unknown]
  - Faeces discoloured [Not Recovered/Not Resolved]
  - Haematochezia [Not Recovered/Not Resolved]
  - Weight decreased [Unknown]
  - Pleural effusion [Unknown]
  - Movement disorder [Unknown]

NARRATIVE: CASE EVENT DATE: 20200706
